FAERS Safety Report 21455531 (Version 2)
Quarter: 2022Q4

REPORT INFORMATION
  Report Type: Spontaneous
  Country: DK (occurrence: DK)
  Receive Date: 20221014
  Receipt Date: 20221102
  Transmission Date: 20230113
  Serious: Yes (Hospitalization)
  Sender: FDA-Public Use
  Company Number: None

PATIENT
  Sex: Male

DRUGS (1)
  1. ADALIMUMAB [Suspect]
     Active Substance: ADALIMUMAB
     Indication: Foetal exposure during pregnancy
     Dosage: UNK (MATERNAL DOSE: UNK)
     Route: 064

REACTIONS (7)
  - Pallor [Unknown]
  - General physical health deterioration [Recovered/Resolved]
  - Respiratory disorder neonatal [Recovered/Resolved]
  - Meningitis neonatal [Unknown]
  - Sepsis neonatal [Recovered/Resolved]
  - Neonatal tachycardia [Unknown]
  - Foetal exposure during pregnancy [Recovered/Resolved]

NARRATIVE: CASE EVENT DATE: 20210501
